FAERS Safety Report 19305343 (Version 3)
Quarter: 2021Q2

REPORT INFORMATION
  Report Type: Spontaneous
  Country: CZ (occurrence: CZ)
  Receive Date: 20210525
  Receipt Date: 20210621
  Transmission Date: 20210717
  Serious: Yes (Death, Life-Threatening, Other)
  Sender: FDA-Public Use
  Company Number: NVSC2021CZ116729

PATIENT
  Sex: Female
  Weight: 89 kg

DRUGS (9)
  1. CONTROLOC [Concomitant]
     Active Substance: PANTOPRAZOLE SODIUM
     Indication: PRODUCT USED FOR UNKNOWN INDICATION
     Dosage: 40 MG, QD (1?0?0)
     Route: 065
  2. VIGANTOL [Concomitant]
     Indication: PRODUCT USED FOR UNKNOWN INDICATION
     Dosage: 10 DRP (1X/D MONDAY TO FRIDAY)
     Route: 065
  3. FRAXIPARINE [Concomitant]
     Active Substance: NADROPARIN CALCIUM
     Indication: PRODUCT USED FOR UNKNOWN INDICATION
     Dosage: 0.4 ML, BID (1?0?1)
     Route: 058
  4. MILURIT [Concomitant]
     Active Substance: ALLOPURINOL
     Indication: PRODUCT USED FOR UNKNOWN INDICATION
     Dosage: 300 MG, QD (1?0?1)
     Route: 065
  5. PARALEN [Concomitant]
     Indication: ANALGESIC THERAPY
     Dosage: 500 MG, TID (1?1?1)
     Route: 065
  6. BETALOC ZOK [Concomitant]
     Active Substance: METOPROLOL SUCCINATE
     Indication: PRODUCT USED FOR UNKNOWN INDICATION
     Dosage: 50 MG, QD (1?0?0)
     Route: 065
  7. DETRALEX [Concomitant]
     Active Substance: DIOSMIN\HESPERIDIN
     Indication: PRODUCT USED FOR UNKNOWN INDICATION
     Dosage: 500 MG, (2?0?0)
     Route: 065
  8. BENDAMUSTINE [Concomitant]
     Active Substance: BENDAMUSTINE
     Indication: CHEMOTHERAPY
     Dosage: UNK
     Route: 065
  9. KYMRIAH [Suspect]
     Active Substance: TISAGENLECLEUCEL
     Indication: DIFFUSE LARGE B-CELL LYMPHOMA
     Dosage: UNK, ONCE/SINGLE (3.3X10E8)
     Route: 041
     Dates: start: 20210426

REACTIONS (6)
  - Circulatory collapse [Unknown]
  - Cytokine release syndrome [Fatal]
  - Multiple organ dysfunction syndrome [Unknown]
  - Staphylococcal infection [Unknown]
  - Diffuse large B-cell lymphoma refractory [Fatal]
  - Immune effector cell-associated neurotoxicity syndrome [Unknown]

NARRATIVE: CASE EVENT DATE: 20210427
